FAERS Safety Report 6965512-5 (Version None)
Quarter: 2010Q3

REPORT INFORMATION
  Report Type: 
  Country: None (occurrence: None)
  Receive Date: 20100903
  Receipt Date: 20100824
  Transmission Date: 20110219
  Serious: Yes (Other)
  Sender: FDA-Public Use
  Company Number: GB-PFIZER INC-2010106847

PATIENT
  Age: 1 Year
  Sex: Female

DRUGS (3)
  1. METHYLPREDNISOLONE SODIUM SUCCINATE [Suspect]
     Indication: IMMUNOSUPPRESSION
     Dosage: 2 MG/KG, UNK
     Route: 042
  2. BASILIXIMAB [Suspect]
     Indication: LIVER AND SMALL INTESTINE TRANSPLANT
     Dosage: UNK MG/KG, 1X/DAY
     Route: 042
  3. PROGRAF [Suspect]
     Indication: LIVER AND SMALL INTESTINE TRANSPLANT
     Dosage: 0.075 MG/KG, 2X/DAY
     Route: 048

REACTIONS (6)
  - IMMUNOSUPPRESSANT DRUG LEVEL INCREASED [None]
  - NEPHROPATHY TOXIC [None]
  - OFF LABEL USE [None]
  - PUPIL FIXED [None]
  - RENAL IMPAIRMENT [None]
  - SEPSIS [None]
